FAERS Safety Report 5143119-2 (Version None)
Quarter: 2006Q4

REPORT INFORMATION
  Report Type: 
  Country: None (occurrence: None)
  Receive Date: 20061103
  Receipt Date: 19981215
  Transmission Date: 20070319
  Serious: Yes (Death, Life-Threatening)
  Sender: FDA-Public Use
  Company Number: DE-BRISTOL-MYERS SQUIBB COMPANY-13385448

PATIENT
  Age: 56 Year
  Sex: Male
  Weight: 80 kg

DRUGS (2)
  1. TAXOL [Suspect]
     Indication: BRONCHIAL CARCINOMA
     Route: 042
     Dates: start: 19980227
  2. CARBOPLATIN [Suspect]
     Indication: BRONCHIAL CARCINOMA

REACTIONS (14)
  - ABDOMINAL DISCOMFORT [None]
  - ARTHRALGIA [None]
  - BONE PAIN [None]
  - DRY SKIN [None]
  - DYSPNOEA EXERTIONAL [None]
  - FEBRILE INFECTION [None]
  - HYPOKINESIA [None]
  - INFLUENZA LIKE ILLNESS [None]
  - MALIGNANT NEOPLASM PROGRESSION [None]
  - NEUROTOXICITY [None]
  - PALLOR [None]
  - RENAL PAIN [None]
  - VENTRICULAR FIBRILLATION [None]
  - VOMITING [None]
